FAERS Safety Report 5309793-2 (Version None)
Quarter: 2007Q1

REPORT INFORMATION
  Report Type: 
  Country: None (occurrence: None)
  Receive Date: 20070201
  Receipt Date: 20060602
  Transmission Date: 20070707
  Serious: Yes (Other)
  Sender: FDA-Public Use
  Company Number: US-2005-026044

PATIENT
  Age: 22 Year
  Sex: Female
  Weight: 52.2 kg

DRUGS (1)
  1. MIRENA [Suspect]
     Indication: CONTRACEPTION
     Dosage: 20 UG/DAY, CONT, INTRA-UTERINE
     Route: 015
     Dates: start: 20051123

REACTIONS (5)
  - PRESYNCOPE [None]
  - PROCEDURAL PAIN [None]
  - TINNITUS [None]
  - UTERINE PERFORATION [None]
  - VAGINAL HAEMORRHAGE [None]
